FAERS Safety Report 7490372-6 (Version None)
Quarter: 2011Q2

REPORT INFORMATION
  Report Type: 
  Country: None (occurrence: None)
  Receive Date: 20110519
  Receipt Date: 20110510
  Transmission Date: 20111010
  Serious: Yes (Hospitalization, Other)
  Sender: FDA-Public Use
  Company Number: US-BAYER-2011-015102

PATIENT
  Age: 49 Year
  Sex: Female

DRUGS (2)
  1. DILAUDID [Suspect]
     Indication: PRODUCT USED FOR UNKNOWN INDICATION
  2. BETASERON [Suspect]
     Indication: MULTIPLE SCLEROSIS
     Dosage: 8 MIU, QOD
     Route: 058
     Dates: start: 20100915

REACTIONS (10)
  - PYREXIA [None]
  - SKIN DISCOLOURATION [None]
  - PRURITUS [None]
  - JOINT WARMTH [None]
  - JOINT INJURY [None]
  - UPPER LIMB FRACTURE [None]
  - PAIN [None]
  - FALL [None]
  - CONTUSION [None]
  - MOBILITY DECREASED [None]
